FAERS Safety Report 25282662 (Version 1)
Quarter: 2025Q2

REPORT INFORMATION
  Report Type: Spontaneous
  Country: US (occurrence: US)
  Receive Date: 20250508
  Receipt Date: 20250508
  Transmission Date: 20250716
  Serious: Yes (Other)
  Sender: AMGEN
  Company Number: US-AMGEN-USASP2025087684

PATIENT
  Sex: Male

DRUGS (2)
  1. REPATHA [Suspect]
     Active Substance: EVOLOCUMAB
     Indication: Product used for unknown indication
     Dosage: 140 MILLIGRAM PER MILLILITRE, QMO
     Route: 065
  2. ASPIRIN [Concomitant]
     Active Substance: ASPIRIN
     Indication: Hypertension

REACTIONS (7)
  - Cardiac arrest [Unknown]
  - Type 1 diabetes mellitus [Unknown]
  - Rheumatoid arthritis [Unknown]
  - Aortic valve replacement [Unknown]
  - Cardiac disorder [Unknown]
  - Device difficult to use [Unknown]
  - Off label use [Unknown]
